FAERS Safety Report 6094195-4 (Version None)
Quarter: 2009Q1

REPORT INFORMATION
  Report Type: 
  Country: None (occurrence: None)
  Receive Date: 20090223
  Receipt Date: 20090209
  Transmission Date: 20090719
  Serious: Yes (Death, Hospitalization, Other)
  Sender: FDA-Public Use
  Company Number: A-JP2008-22885

PATIENT
  Age: 7 Year
  Sex: Male
  Weight: 18 kg

DRUGS (18)
  1. TRACLEER [Suspect]
     Indication: PULMONARY ARTERIAL HYPERTENSION
     Dosage: 27 MG, BID, ORAL; 9 MG, BID, ORAL; 18 MG, BID, ORAL; 17.5 MG, BID, ORAL
     Route: 048
     Dates: start: 20060216, end: 20060227
  2. TRACLEER [Suspect]
     Indication: PULMONARY ARTERIAL HYPERTENSION
     Dosage: 27 MG, BID, ORAL; 9 MG, BID, ORAL; 18 MG, BID, ORAL; 17.5 MG, BID, ORAL
     Route: 048
     Dates: start: 20060228, end: 20060306
  3. TRACLEER [Suspect]
     Indication: PULMONARY ARTERIAL HYPERTENSION
     Dosage: 27 MG, BID, ORAL; 9 MG, BID, ORAL; 18 MG, BID, ORAL; 17.5 MG, BID, ORAL
     Route: 048
     Dates: start: 20060307, end: 20060629
  4. TRACLEER [Suspect]
     Indication: PULMONARY ARTERIAL HYPERTENSION
     Dosage: 27 MG, BID, ORAL; 9 MG, BID, ORAL; 18 MG, BID, ORAL; 17.5 MG, BID, ORAL
     Route: 048
     Dates: start: 20060703, end: 20061018
  5. EPOPROSTENOL SODIUM [Suspect]
  6. FUROSEMIDE [Concomitant]
  7. SPIRONOLACTONE [Concomitant]
  8. AMLODIPINE BESYLATE [Concomitant]
  9. KETOTIFEN FUMARATE (KETOTIFEN FUMARATE) [Concomitant]
  10. FERRIC PYROPHOSPHATE (FERRIC PYROPHOSPHATE) [Concomitant]
  11. SULTAMICILLIN TOSILATE (SULTAMICILLIN TOSILATE) [Concomitant]
  12. DOBUTAMINE HCL [Concomitant]
  13. SILDENAFIL CITRATE [Concomitant]
  14. POTASSIUM CANRENOATE (POTASSIUM CANRENOATE) [Concomitant]
  15. OXYGEN (OXYGEN) [Concomitant]
  16. POTASSIUM GLUCONATE (POTASSIUM GLUCONATE) [Concomitant]
  17. CHLORPHENIRAMINE MALEATE (CHLORPHENIRAMINE MALEATE) [Concomitant]
  18. ANTIBIOTICS-RESISTANT LACTIC ACID BACTERIAE (ANTIBIOTICS-RESISTANT LAC [Concomitant]

REACTIONS (14)
  - ANOREXIA [None]
  - BRAIN NATRIURETIC PEPTIDE INCREASED [None]
  - CARDIAC FAILURE [None]
  - CARDIOMEGALY [None]
  - DISEASE PROGRESSION [None]
  - FACE OEDEMA [None]
  - GENERAL PHYSICAL HEALTH DETERIORATION [None]
  - GENERALISED OEDEMA [None]
  - HEPATOMEGALY [None]
  - HOT FLUSH [None]
  - PERICARDIAL EFFUSION [None]
  - PULMONARY HYPERTENSION [None]
  - VASODILATATION [None]
  - WEIGHT DECREASED [None]
